FAERS Safety Report 9920847 (Version 1)
Quarter: 2014Q1

REPORT INFORMATION
  Report Type: Report from Study
  Country: US (occurrence: US)
  Receive Date: 20140225
  Receipt Date: 20140225
  Transmission Date: 20141002
  Serious: Yes (Other)
  Sender: FDA-Public Use
  Company Number: US-ROCHE-1333563

PATIENT
  Age: 82 Year
  Sex: Male
  Weight: 97.16 kg

DRUGS (21)
  1. LUCENTIS [Suspect]
     Indication: AGE-RELATED MACULAR DEGENERATION
     Dosage: OD
     Route: 050
     Dates: start: 20100602
  2. LUCENTIS [Suspect]
     Dosage: OD
     Route: 050
     Dates: start: 20100707
  3. LUCENTIS [Suspect]
     Dosage: OD
     Route: 050
     Dates: start: 20100809
  4. LUCENTIS [Suspect]
     Dosage: OD
     Route: 050
     Dates: start: 20110228
  5. LUCENTIS [Suspect]
     Dosage: OD
     Route: 050
     Dates: start: 20110502
  6. LUCENTIS [Suspect]
     Dosage: OD
     Route: 050
     Dates: start: 20110718
  7. LUCENTIS [Suspect]
     Dosage: OD
     Route: 050
     Dates: start: 20110822
  8. LUCENTIS [Suspect]
     Dosage: OD
     Route: 050
     Dates: start: 20111107
  9. LUCENTIS [Suspect]
     Dosage: OD
     Route: 050
     Dates: start: 20111212
  10. LUCENTIS [Suspect]
     Dosage: OD
     Route: 050
     Dates: start: 20120116
  11. LUCENTIS [Suspect]
     Dosage: OD
     Route: 050
     Dates: start: 20120213
  12. LUCENTIS [Suspect]
     Dosage: OD
     Route: 050
     Dates: start: 20120312
  13. LUCENTIS [Suspect]
     Dosage: OD
     Route: 050
     Dates: start: 20120423
  14. LUCENTIS [Suspect]
     Dosage: OD
     Route: 050
     Dates: start: 20120521
  15. LUCENTIS [Suspect]
     Dosage: OD
     Route: 050
     Dates: start: 20120621
  16. AVASTIN [Suspect]
     Indication: PRODUCT USED FOR UNKNOWN INDICATION
     Route: 065
     Dates: start: 20100503
  17. ASPIRIN [Concomitant]
  18. AVAPRO [Concomitant]
  19. LIPITOR [Concomitant]
  20. SOTALOL HYDROCHLORIDE [Concomitant]
  21. SYSTANE [Concomitant]

REACTIONS (7)
  - Cough [Unknown]
  - Palpitations [Unknown]
  - Musculoskeletal stiffness [Unknown]
  - Back pain [Unknown]
  - Macular oedema [Unknown]
  - Dry eye [Unknown]
  - Posterior capsule opacification [Unknown]
